FAERS Safety Report 5207169-X (Version None)
Quarter: 2007Q1

REPORT INFORMATION
  Report Type: 
  Country: None (occurrence: None)
  Receive Date: 20070112
  Receipt Date: 20070109
  Transmission Date: 20070707
  Serious: Yes (Death)
  Sender: FDA-Public Use
  Company Number: JP-AVENTIS-200710035JP

PATIENT
  Age: 79 Year
  Sex: Male
  Weight: 38 kg

DRUGS (8)
  1. LASIX [Suspect]
     Indication: CARDIAC FAILURE CHRONIC
     Route: 048
     Dates: start: 20061128, end: 20061217
  2. ANCARON [Suspect]
     Indication: ATRIAL FIBRILLATION
     Route: 048
     Dates: start: 20061207, end: 20061212
  3. ANCARON [Suspect]
     Route: 048
     Dates: start: 20061213, end: 20061217
  4. LONGES [Suspect]
     Indication: CARDIAC FAILURE CHRONIC
     Route: 048
     Dates: start: 20061128, end: 20061217
  5. ALDACTAZIDE-A [Suspect]
     Indication: CARDIAC FAILURE CHRONIC
     Route: 048
     Dates: start: 20061128, end: 20061217
  6. WARFARIN SODIUM [Concomitant]
     Indication: ATRIAL FIBRILLATION
     Route: 048
     Dates: start: 20061207, end: 20061217
  7. ASPIRIN [Concomitant]
     Indication: ATRIAL FIBRILLATION
     Route: 048
     Dates: start: 20061128, end: 20061217
  8. ASPIRIN [Concomitant]
     Indication: CARDIAC FAILURE CHRONIC
     Route: 048
     Dates: start: 20061128, end: 20061217

REACTIONS (7)
  - ANOREXIA [None]
  - ARRHYTHMIA [None]
  - ATRIAL FIBRILLATION [None]
  - DEHYDRATION [None]
  - DEPRESSED LEVEL OF CONSCIOUSNESS [None]
  - NO THERAPEUTIC RESPONSE [None]
  - SINUS ARREST [None]
